FAERS Safety Report 6248511-0 (Version None)
Quarter: 2009Q2

REPORT INFORMATION
  Report Type: 
  Country: None (occurrence: None)
  Receive Date: 20090629
  Receipt Date: 20090619
  Transmission Date: 20091009
  Serious: Yes (Hospitalization)
  Sender: FDA-Public Use
  Company Number: DE-BRISTOL-MYERS SQUIBB COMPANY-14679237

PATIENT
  Sex: Female

DRUGS (1)
  1. MITOMYCIN [Suspect]
     Dosage: FORMULATION: INJECTION.
     Route: 065

REACTIONS (3)
  - PLATELET COUNT DECREASED [None]
  - PNEUMONITIS [None]
  - PULMONARY HAEMORRHAGE [None]
